FAERS Safety Report 6751369-4 (Version None)
Quarter: 2010Q2

REPORT INFORMATION
  Report Type: 
  Country: None (occurrence: None)
  Receive Date: 20100528
  Receipt Date: 20100517
  Transmission Date: 20101027
  Serious: Yes (Hospitalization)
  Sender: FDA-Public Use
  Company Number: 1000011314

PATIENT
  Age: 31 Year
  Sex: Male
  Weight: 112 kg

DRUGS (5)
  1. ESCITALOPRAM [Suspect]
     Indication: DEPRESSION
     Dosage: 20 MG (20 MG, 1 IN 1 D), ORAL
     Route: 048
     Dates: start: 20091221, end: 20100102
  2. OXYCONTIN [Suspect]
     Indication: PAIN
     Dosage: 10 MG (10 MG, 1 IN 1 D), ORAL
     Route: 048
     Dates: start: 20090101
  3. MANDOLGIN [Suspect]
     Dosage: 200 MG (50 MG, 4 IN 1 D), ORAL
     Route: 048
     Dates: start: 20090101, end: 20100126
  4. SEROQUEL [Suspect]
     Dosage: ORAL
     Route: 048
  5. LYRICA [Suspect]
     Indication: DEPRESSION
     Dosage: ORAL
     Route: 048
     Dates: start: 20091231, end: 20100105

REACTIONS (4)
  - DEPRESSION [None]
  - GRAND MAL CONVULSION [None]
  - RHABDOMYOLYSIS [None]
  - URINARY RETENTION [None]
